FAERS Safety Report 23454416 (Version 3)
Quarter: 2025Q1

REPORT INFORMATION
  Report Type: Spontaneous
  Country: US (occurrence: US)
  Receive Date: 20240130
  Receipt Date: 20250326
  Transmission Date: 20250408
  Serious: Yes (Death, Life-Threatening, Hospitalization)
  Sender: TEVA
  Company Number: US-TEVA-VS-3147541

PATIENT
  Age: 48 Year
  Sex: Female

DRUGS (2)
  1. TAMOXIFEN [Suspect]
     Active Substance: TAMOXIFEN
     Indication: Breast mass
     Route: 065
  2. GEMFIBROZIL [Suspect]
     Active Substance: GEMFIBROZIL
     Indication: Hypertriglyceridaemia
     Route: 065

REACTIONS (7)
  - Hypertriglyceridaemia [Fatal]
  - Renal failure [Unknown]
  - Respiratory distress [Unknown]
  - Hypotension [Unknown]
  - Drug ineffective [Unknown]
  - Abdominal compartment syndrome [Unknown]
  - Pancreatitis [Fatal]
